FAERS Safety Report 9049408 (Version 2)
Quarter: 2013Q2

REPORT INFORMATION
  Report Type: Report from Study
  Country: US (occurrence: US)
  Receive Date: 20130205
  Receipt Date: 20130516
  Transmission Date: 20140414
  Serious: Yes (Hospitalization)
  Sender: FDA-Public Use
  Company Number: PHHO2013US001780

PATIENT
  Age: 65 Year
  Sex: Male
  Weight: 99.1 kg

DRUGS (2)
  1. AFINITOR [Suspect]
     Indication: THYROID CANCER
     Dosage: UNK
     Route: 048
  2. AFINITOR [Suspect]
     Dosage: UNK
     Route: 048
     Dates: start: 20130206

REACTIONS (1)
  - Ileus [Unknown]
